FAERS Safety Report 9837282 (Version 6)
Quarter: 2014Q2

REPORT INFORMATION
  Report Type: Spontaneous
  Country: US (occurrence: US)
  Receive Date: 20140123
  Receipt Date: 20140507
  Transmission Date: 20141212
  Serious: Yes (Other)
  Sender: FDA-Public Use
  Company Number: US-PFIZER INC-2014018655

PATIENT
  Sex: Female

DRUGS (22)
  1. CELEBREX [Suspect]
     Indication: ARTHRITIS
     Dosage: 200 MG, 2X/DAY
     Route: 048
  2. CELEBREX [Suspect]
     Indication: ARTHRITIS
  3. CELEBREX [Suspect]
     Indication: ARTHRITIS
  4. FLUTICASONE [Concomitant]
     Dosage: UNK
     Route: 045
  5. PROAIR [Concomitant]
     Dosage: UNK
  6. ADVAIR DISKUS [Concomitant]
     Indication: ASTHMA
     Dosage: UNK, INHALER
  7. ADVAIR DISKUS [Concomitant]
     Indication: CHRONIC OBSTRUCTIVE PULMONARY DISEASE
  8. AZELASTINE [Concomitant]
     Dosage: UNK
  9. SPIRIVA [Concomitant]
     Dosage: UNK
  10. PROMETHAZINE [Concomitant]
     Dosage: UNK
  11. PRAMIPEXOLE [Concomitant]
     Dosage: UNK
  12. DONEPEZIL [Concomitant]
     Dosage: UNK
  13. LEVOTHYROXINE [Concomitant]
     Dosage: UNK
  14. LATANOPROST [Concomitant]
     Dosage: UNK
  15. NITROSTAT [Concomitant]
     Dosage: UNK
  16. SPIRONOLACTONE [Concomitant]
     Dosage: UNK
  17. TRAMADOL [Concomitant]
     Dosage: UNK
  18. CLONAZEPAM [Concomitant]
     Dosage: UNK
  19. SIMVASTATIN [Concomitant]
     Dosage: UNK
  20. BYSTOLIC [Concomitant]
     Dosage: UNK
  21. HYDROXYZINE [Concomitant]
     Dosage: UNK
  22. LOSARTAN [Concomitant]
     Dosage: UNK

REACTIONS (2)
  - Deafness [Unknown]
  - Gait disturbance [Unknown]
